FAERS Safety Report 6302041-6 (Version None)
Quarter: 2009Q3

REPORT INFORMATION
  Report Type: 
  Country: None (occurrence: None)
  Receive Date: 20090807
  Receipt Date: 20080818
  Transmission Date: 20100115
  Serious: Yes (Life-Threatening, Hospitalization)
  Sender: FDA-Public Use
  Company Number: US-ASTRAZENECA-2008UW17045

PATIENT
  Age: 83 Year
  Sex: Female
  Weight: 63 kg

DRUGS (34)
  1. SEROQUEL [Suspect]
     Indication: DEMENTIA
     Route: 048
     Dates: start: 20070723
  2. SEROQUEL [Suspect]
     Indication: SCHIZOAFFECTIVE DISORDER
     Route: 048
     Dates: start: 20070723
  3. SEROQUEL [Suspect]
     Route: 048
     Dates: start: 20070815
  4. SEROQUEL [Suspect]
     Route: 048
     Dates: start: 20070815
  5. SEROQUEL [Suspect]
     Route: 048
     Dates: start: 20070919
  6. SEROQUEL [Suspect]
     Route: 048
     Dates: start: 20070919
  7. SEROQUEL [Suspect]
     Route: 048
     Dates: start: 20071003
  8. SEROQUEL [Suspect]
     Route: 048
     Dates: start: 20071003
  9. SEROQUEL [Suspect]
     Route: 048
     Dates: start: 20071121, end: 20080103
  10. SEROQUEL [Suspect]
     Route: 048
     Dates: start: 20071121, end: 20080103
  11. DIVALPROEX SODIUM [Concomitant]
  12. DIVALPROEX SODIUM [Concomitant]
  13. GABAPENTIN [Concomitant]
  14. GABAPENTIN [Concomitant]
  15. SIMVASTATIN [Concomitant]
  16. SIMVASTATIN [Concomitant]
  17. NITROFURANTOIN [Concomitant]
  18. NITROFURANTOIN [Concomitant]
  19. HYDROCHLOROTHIAZIDE [Concomitant]
  20. HYDROCHLOROTHIAZIDE [Concomitant]
  21. FELODIPINE [Concomitant]
  22. FELODIPINE [Concomitant]
  23. TRAZODONE HCL [Concomitant]
  24. TRAZODONE HCL [Concomitant]
  25. BUPROPION [Concomitant]
  26. BUPROPION [Concomitant]
  27. ATENOLOL [Concomitant]
  28. ATENOLOL [Concomitant]
  29. OMEPRAZOLE [Concomitant]
  30. OMEPRAZOLE [Concomitant]
  31. DICLOFENAC [Concomitant]
  32. DICLOFENAC [Concomitant]
  33. PLAVIX [Concomitant]
  34. PLAVIX [Concomitant]

REACTIONS (2)
  - THROMBOCYTOPENIA [None]
  - TRANSIENT ISCHAEMIC ATTACK [None]
